FAERS Safety Report 12691813 (Version 1)
Quarter: 2016Q3

REPORT INFORMATION
  Report Type: Spontaneous
  Country: US (occurrence: US)
  Receive Date: 20160826
  Receipt Date: 20160826
  Transmission Date: 20161109
  Serious: Yes (Other)
  Sender: FDA-Public Use
  Company Number: US-ELI_LILLY_AND_COMPANY-US201608008921

PATIENT
  Age: 24 Year
  Sex: Male

DRUGS (3)
  1. HUMALOG [Suspect]
     Active Substance: INSULIN LISPRO
     Dosage: 4 U, SLIDING SCALE
     Route: 065
     Dates: start: 201308
  2. LANTUS [Concomitant]
     Active Substance: INSULIN GLARGINE
     Indication: DIABETES MELLITUS
  3. HUMALOG [Suspect]
     Active Substance: INSULIN LISPRO
     Indication: DIABETES MELLITUS
     Dosage: 4 U, SLIDING SCALE
     Route: 065
     Dates: start: 201308

REACTIONS (9)
  - Syncope [Unknown]
  - Hypoglycaemia [Recovered/Resolved]
  - Blood glucose increased [Unknown]
  - Agitation [Unknown]
  - Underdose [Unknown]
  - Diabetes mellitus [Unknown]
  - Insulin C-peptide decreased [Unknown]
  - Glycosylated haemoglobin increased [Unknown]
  - Head injury [Unknown]

NARRATIVE: CASE EVENT DATE: 201408
